FAERS Safety Report 15765785 (Version 2)
Quarter: 2019Q4

REPORT INFORMATION
  Report Type: Spontaneous
  Country: US (occurrence: US)
  Receive Date: 20181227
  Receipt Date: 20191227
  Transmission Date: 20200122
  Serious: No
  Sender: FDA-Public Use
  Company Number: US-SA-2018SA392708

PATIENT
  Age: 67 Year
  Sex: Male

DRUGS (2)
  1. PRALUENT [Suspect]
     Active Substance: ALIROCUMAB
     Indication: HYPERLIPIDAEMIA
     Dosage: 75 MG, QOW
     Route: 058
     Dates: start: 20181011
  2. PRALUENT [Suspect]
     Active Substance: ALIROCUMAB
     Dosage: 75 MG, QOW
     Route: 058
     Dates: start: 201906

REACTIONS (6)
  - Influenza like illness [Unknown]
  - Nervousness [Unknown]
  - Cough [Unknown]
  - Pain [Unknown]
  - Condition aggravated [Unknown]
  - Myalgia [Unknown]

NARRATIVE: CASE EVENT DATE: 2018
